FAERS Safety Report 14229785 (Version 1)
Quarter: 2017Q4

REPORT INFORMATION
  Report Type: Spontaneous
  Country: US (occurrence: None)
  Receive Date: 20171128
  Receipt Date: 20171128
  Transmission Date: 20180321
  Serious: Yes (Disabling)
  Sender: FDA-Public Use
  Company Number: None

PATIENT
  Age: 75 Year
  Sex: Female
  Weight: 58.97 kg

DRUGS (8)
  1. OCUTIVE W/LUTEIN [Concomitant]
  2. NATURAL VITAMIN E [Concomitant]
  3. DOCUSIL [Concomitant]
  4. CITRUS BIOFLAVONOIDS. [Concomitant]
     Active Substance: CITRUS BIOFLAVONOIDS
  5. COQ10 [Concomitant]
     Active Substance: UBIDECARENONE
  6. LECITHIN [Concomitant]
     Active Substance: LECITHIN
  7. CENTRUM SILVER [Concomitant]
     Active Substance: MINERALS\VITAMINS
  8. METRONIDAZOLE FOR FLAGYL [Suspect]
     Active Substance: METRONIDAZOLE
     Indication: INFECTION PROPHYLAXIS
     Route: 048
     Dates: start: 20171104, end: 20171109

REACTIONS (8)
  - Renal pain [None]
  - Decreased appetite [None]
  - Hypertension [None]
  - Weight decreased [None]
  - Muscle spasms [None]
  - Constipation [None]
  - Dehydration [None]
  - Headache [None]

NARRATIVE: CASE EVENT DATE: 20171104
